FAERS Safety Report 9698832 (Version 2)
Quarter: 2014Q2

REPORT INFORMATION
  Report Type: Spontaneous
  Country: DE (occurrence: None)
  Receive Date: 20131118
  Receipt Date: 20140619
  Transmission Date: 20141212
  Serious: Yes (Other)
  Sender: FDA-Public Use
  Company Number: 1311-1450

PATIENT
  Age: 76 Year
  Sex: Male

DRUGS (1)
  1. EYLEA (AFLIBERCEPT) (INJECTION) [Suspect]
     Indication: AGE-RELATED MACULAR DEGENERATION
     Dosage: OD,
     Route: 031
     Dates: start: 20131008, end: 20131008

REACTIONS (2)
  - Vitreous haemorrhage [None]
  - Injury [None]
